FAERS Safety Report 23073660 (Version 1)
Quarter: 2023Q4

REPORT INFORMATION
  Report Type: Report from Study
  Country: US (occurrence: US)
  Receive Date: 20231017
  Receipt Date: 20231017
  Transmission Date: 20240109
  Serious: Yes (Other)
  Sender: FDA-Public Use
  Company Number: US-ABBVIE-5450142

PATIENT
  Sex: Female
  Weight: 69 kg

DRUGS (6)
  1. HUMIRA [Suspect]
     Active Substance: ADALIMUMAB
     Indication: Psoriatic arthropathy
     Dosage: FORM STRENGTH: 40 MG, CITRATE FREE
     Route: 058
     Dates: end: 20230709
  2. HUMIRA [Suspect]
     Active Substance: ADALIMUMAB
     Indication: Arthritis
     Dosage: FORM STRENGTH: 40 MG?CITRATE FREE
     Route: 058
     Dates: start: 20191029
  3. HUMIRA [Suspect]
     Active Substance: ADALIMUMAB
     Dosage: LAST ADMIN DATE: 2023, FORM STRENGTH: 40 MG, CITRATE FREE
     Route: 058
     Dates: start: 202308
  4. HUMIRA [Suspect]
     Active Substance: ADALIMUMAB
     Dosage: FORM STRENGTH: 40 MG, CITRATE FREE
     Route: 058
     Dates: start: 2011
  5. METHOTREXATE [Concomitant]
     Active Substance: METHOTREXATE
     Indication: Product used for unknown indication
     Dosage: FORM STRENGTH: 25 MG
  6. FOLIC ACID [Concomitant]
     Active Substance: FOLIC ACID
     Indication: Product used for unknown indication

REACTIONS (14)
  - Pain in extremity [Recovering/Resolving]
  - Cataract [Unknown]
  - Toe amputation [Unknown]
  - Arthralgia [Not Recovered/Not Resolved]
  - X-ray abnormal [Not Recovered/Not Resolved]
  - Memory impairment [Unknown]
  - Herpes zoster [Recovered/Resolved]
  - Foot operation [Recovered/Resolved]
  - Neuropathy peripheral [Unknown]
  - Limb discomfort [Recovering/Resolving]
  - Hyperkeratosis [Recovering/Resolving]
  - Foot deformity [Recovering/Resolving]
  - Swelling [Unknown]
  - Arthralgia [Recovered/Resolved]

NARRATIVE: CASE EVENT DATE: 20120101
